FAERS Safety Report 7306488-0 (Version None)
Quarter: 2011Q1

REPORT INFORMATION
  Report Type: 
  Country: None (occurrence: None)
  Receive Date: 20110201
  Receipt Date: 20110127
  Transmission Date: 20110831
  Serious: Yes (Hospitalization)
  Sender: FDA-Public Use
  Company Number: ABR_00001_2011

PATIENT
  Age: 53 Year
  Sex: Female

DRUGS (3)
  1. BENZYLPENICILLIN (PENICILLIN) [Suspect]
     Indication: UPPER RESPIRATORY TRACT INFECTION
     Dates: start: 20091001
  2. ERYTHROMYCIN [Suspect]
     Indication: UPPER RESPIRATORY TRACT INFECTION
     Dates: start: 20091001
  3. CEPHALOSPORIN (CEPHALOSPORIN) [Suspect]
     Indication: UPPER RESPIRATORY TRACT INFECTION
     Dates: start: 20091001

REACTIONS (3)
  - RENAL FAILURE ACUTE [None]
  - ANAPHYLACTIC REACTION [None]
  - TUBULOINTERSTITIAL NEPHRITIS [None]
